FAERS Safety Report 23867122 (Version 1)
Quarter: 2024Q2

REPORT INFORMATION
  Report Type: Report from Study
  Country: US (occurrence: US)
  Receive Date: 20240517
  Receipt Date: 20240517
  Transmission Date: 20240716
  Serious: No
  Sender: FDA-Public Use
  Company Number: US-DECIPHERA PHARMACEUTICALS LLC-2024US000448

PATIENT
  Age: 60 Year
  Sex: Male

DRUGS (2)
  1. QINLOCK [Suspect]
     Active Substance: RIPRETINIB
     Indication: Gastrointestinal stromal tumour
     Dosage: 100 MILLIGRAM, QD
     Route: 048
     Dates: start: 20240320, end: 2024
  2. QINLOCK [Suspect]
     Active Substance: RIPRETINIB
     Dosage: 50 MILLIGRAM, QD (TAKING 1 PILL/DAY INSTEAD OF 2 PILLS/DAY)
     Route: 048
     Dates: start: 2024

REACTIONS (5)
  - Blood glucose increased [Unknown]
  - Rash [Unknown]
  - Dry skin [Recovering/Resolving]
  - Hypertension [Unknown]
  - Underdose [Unknown]

NARRATIVE: CASE EVENT DATE: 20240101
